FAERS Safety Report 5363213-0 (Version None)
Quarter: 2007Q2

REPORT INFORMATION
  Report Type: 
  Country: None (occurrence: None)
  Receive Date: 20070620
  Receipt Date: 20070613
  Transmission Date: 20071010
  Serious: Yes (Other)
  Sender: FDA-Public Use
  Company Number: PHEH2007US03885

PATIENT
  Age: 58 Year
  Sex: Female

DRUGS (3)
  1. ZELNORM [Suspect]
     Indication: CONSTIPATION
     Dosage: 6 MG, TID
     Dates: start: 20060101, end: 20061227
  2. AMITIZA [Concomitant]
     Dosage: UNK, BID
     Dates: start: 20060601
  3. MORPHINE SULFATE [Concomitant]
     Dosage: 30 MG, QID

REACTIONS (13)
  - ANXIETY [None]
  - BACK PAIN [None]
  - CHEST PAIN [None]
  - CONFUSIONAL STATE [None]
  - DIVERTICULUM [None]
  - HEART RATE INCREASED [None]
  - HYPERTENSION [None]
  - HYPOAESTHESIA [None]
  - MUSCULAR WEAKNESS [None]
  - PAIN IN EXTREMITY [None]
  - PARAESTHESIA [None]
  - RECTOCELE [None]
  - THIRST [None]
